FAERS Safety Report 9319841 (Version 1)
Quarter: 2013Q2

REPORT INFORMATION
  Report Type: Spontaneous
  Country: US (occurrence: US)
  Receive Date: 20130530
  Receipt Date: 20130530
  Transmission Date: 20140414
  Serious: No
  Sender: FDA-Public Use
  Company Number: US-UPSHER-SMITH LABORATORIES, INC.-12001281

PATIENT
  Sex: Female

DRUGS (4)
  1. KLOR-CON [Suspect]
     Indication: BLOOD POTASSIUM DECREASED
     Dosage: 16 MEQ, BID
     Route: 048
     Dates: start: 2009, end: 201112
  2. KLOR-CON [Suspect]
     Dosage: 24 MEQ, BID
     Route: 048
     Dates: start: 201112, end: 201205
  3. LIPITOR [Concomitant]
     Dosage: UNK
  4. PLAVIX                             /01220701/ [Concomitant]
     Dosage: UNK

REACTIONS (2)
  - Drug ineffective [Recovered/Resolved]
  - Medication residue present [Recovered/Resolved]
